FAERS Safety Report 18241607 (Version 1)
Quarter: 2020Q3

REPORT INFORMATION
  Report Type: Spontaneous
  Country: US (occurrence: US)
  Receive Date: 20200907
  Receipt Date: 20200907
  Transmission Date: 20201103
  Serious: Yes (Other)
  Sender: FDA-Public Use
  Company Number: None

PATIENT
  Age: 33 Year
  Sex: Female
  Weight: 103.5 kg

DRUGS (1)
  1. PREMIER VALUE NASAL SPRAY ORIGINAL NO DRIP [Suspect]
     Active Substance: OXYMETAZOLINE HYDROCHLORIDE
     Indication: SEASONAL ALLERGY
     Dosage: ?          QUANTITY:2 SPRAY(S);?
     Route: 055
     Dates: start: 20200903, end: 20200904

REACTIONS (5)
  - Therapeutic product effect decreased [None]
  - Product substitution issue [None]
  - Burning sensation [None]
  - Pain [None]
  - Paranasal sinus discomfort [None]

NARRATIVE: CASE EVENT DATE: 20200904
